FAERS Safety Report 8289022-0 (Version None)
Quarter: 2012Q2

REPORT INFORMATION
  Report Type: 
  Country: None (occurrence: None)
  Receive Date: 20120417
  Receipt Date: 20120409
  Transmission Date: 20120825
  Serious: Yes (Other)
  Sender: FDA-Public Use
  Company Number: US-US-EMD SERONO, INC.-7125421

PATIENT
  Sex: Female
  Weight: 82 kg

DRUGS (2)
  1. CYMBALTA [Concomitant]
     Indication: DEPRESSION
  2. REBIF [Suspect]
     Indication: PRODUCT USED FOR UNKNOWN INDICATION
     Dates: end: 20081001

REACTIONS (2)
  - CEREBROVASCULAR ACCIDENT [None]
  - INTESTINAL OPERATION [None]
